FAERS Safety Report 8098299-6 (Version None)
Quarter: 2012Q1

REPORT INFORMATION
  Report Type: 
  Country: None (occurrence: None)
  Receive Date: 20120128
  Receipt Date: 20110815
  Transmission Date: 20120608
  Serious: No
  Sender: FDA-Public Use
  Company Number: US-ABBOTT-11P-163-0847009-00

PATIENT
  Sex: Female

DRUGS (23)
  1. BUMEX [Concomitant]
     Indication: PRODUCT USED FOR UNKNOWN INDICATION
  2. ALBUTEROL [Concomitant]
     Indication: PRODUCT USED FOR UNKNOWN INDICATION
     Dosage: INHALER
  3. PRILOSEC [Concomitant]
     Indication: PRODUCT USED FOR UNKNOWN INDICATION
  4. GREEN TEA CAPSULE [Concomitant]
     Indication: SUPPLEMENTATION THERAPY
  5. CYMBALTA [Concomitant]
     Indication: PRODUCT USED FOR UNKNOWN INDICATION
  6. CELEBREX [Concomitant]
     Indication: RHEUMATOID ARTHRITIS
  7. LYRICA [Concomitant]
     Indication: FIBROMYALGIA
  8. SYMBICORT [Concomitant]
     Indication: PRODUCT USED FOR UNKNOWN INDICATION
  9. VITAMIN B-12 [Concomitant]
     Indication: SUPPLEMENTATION THERAPY
     Route: 048
  10. PENNSAID [Concomitant]
     Indication: PRODUCT USED FOR UNKNOWN INDICATION
  11. VICODIN [Concomitant]
     Indication: RHEUMATOID ARTHRITIS
  12. ISONIAZID [Concomitant]
     Indication: PRODUCT USED FOR UNKNOWN INDICATION
  13. MULTI-VITAMIN [Concomitant]
     Indication: SUPPLEMENTATION THERAPY
  14. VITAMIN D [Concomitant]
     Indication: VITAMIN SUPPLEMENTATION
  15. CALCIUM [Concomitant]
     Indication: SUPPLEMENTATION THERAPY
  16. VOLTAREN [Concomitant]
     Indication: PRODUCT USED FOR UNKNOWN INDICATION
  17. VALTREX [Concomitant]
     Indication: PRODUCT USED FOR UNKNOWN INDICATION
  18. METROGEL [Concomitant]
     Indication: PRODUCT USED FOR UNKNOWN INDICATION
  19. HUMIRA [Suspect]
     Indication: RHEUMATOID ARTHRITIS
     Dates: start: 20110301
  20. ULTRAM [Concomitant]
     Indication: RHEUMATOID ARTHRITIS
  21. METHOTREXATE [Concomitant]
     Indication: RHEUMATOID ARTHRITIS
  22. FOLIC ACID [Concomitant]
     Indication: VITAMIN SUPPLEMENTATION
  23. IRON [Concomitant]
     Indication: PRODUCT USED FOR UNKNOWN INDICATION

REACTIONS (2)
  - MYALGIA [None]
  - GAIT DISTURBANCE [None]
